FAERS Safety Report 11144637 (Version 2)
Quarter: 2015Q2

REPORT INFORMATION
  Report Type: Spontaneous
  Country: US (occurrence: US)
  Receive Date: 20150528
  Receipt Date: 20150616
  Transmission Date: 20150821
  Serious: Yes (Other)
  Sender: FDA-Public Use
  Company Number: US-PFIZER INC-2015172792

PATIENT
  Age: 85 Year
  Sex: Male
  Weight: 79 kg

DRUGS (1)
  1. VIAGRA [Suspect]
     Active Substance: SILDENAFIL CITRATE
     Dosage: 50 MG, (HALF OF 100MG)

REACTIONS (5)
  - Dizziness [Unknown]
  - Asthenia [Unknown]
  - Visual brightness [Unknown]
  - Mydriasis [Unknown]
  - Visual impairment [Unknown]

NARRATIVE: CASE EVENT DATE: 20150511
